FAERS Safety Report 8347167-0 (Version None)
Quarter: 2012Q2

REPORT INFORMATION
  Report Type: 
  Country: None (occurrence: None)
  Receive Date: 20120509
  Receipt Date: 20120426
  Transmission Date: 20120825
  Serious: Yes (Life-Threatening, Hospitalization)
  Sender: FDA-Public Use
  Company Number: FR-VERTEX PHARMACEUTICALS INC.-000000000000000292

PATIENT
  Sex: Female
  Weight: 66 kg

DRUGS (11)
  1. INCIVO (TELAPREVIR) [Suspect]
     Indication: HEPATITIS C
     Dosage: DOSAGE FORM: TABLET
     Route: 048
     Dates: start: 20111017, end: 20120101
  2. ARIMIDEX [Concomitant]
     Indication: PRODUCT USED FOR UNKNOWN INDICATION
  3. EFFEXOR [Concomitant]
     Indication: DEPRESSION
  4. EFFEXOR [Concomitant]
     Dates: start: 20020101
  5. NOCTAMIDE [Concomitant]
     Indication: INSOMNIA
     Dates: start: 20030101
  6. DILTIAZEM HCL [Concomitant]
     Indication: PROPHYLAXIS
  7. NEORECORMON [Concomitant]
     Indication: ANAEMIA
     Dates: start: 20111205, end: 20120106
  8. PEGASYS [Concomitant]
     Indication: HEPATITIS C
     Route: 058
     Dates: start: 20111017, end: 20120106
  9. DILTIAZEM HCL [Concomitant]
     Dates: start: 20020101
  10. COPEGUS [Concomitant]
     Indication: HEPATITIS C
     Dates: start: 20111017, end: 20120106
  11. VITAMIN D [Concomitant]
     Indication: PRODUCT USED FOR UNKNOWN INDICATION
     Dosage: DOSAGE FORM: AMPOULES

REACTIONS (3)
  - DRUG ERUPTION [None]
  - ANAEMIA [None]
  - DRUG RASH WITH EOSINOPHILIA AND SYSTEMIC SYMPTOMS [None]
